FAERS Safety Report 22651885 (Version 1)
Quarter: 2023Q2

REPORT INFORMATION
  Report Type: Spontaneous
  Country: US (occurrence: US)
  Receive Date: 20230628
  Receipt Date: 20230628
  Transmission Date: 20230721
  Serious: No
  Sender: FDA-Public Use
  Company Number: US-CTI BIOPHARMA-2023US03694

PATIENT

DRUGS (10)
  1. VONJO [Suspect]
     Active Substance: PACRITINIB
     Indication: Myelofibrosis
     Dosage: 100 MG, BID
     Route: 048
     Dates: start: 202204
  2. CALCIUM [Concomitant]
     Active Substance: CALCIUM
  3. CLONIDINE [Concomitant]
     Active Substance: CLONIDINE
  4. VITAMINS NOS [Concomitant]
     Active Substance: VITAMINS
  5. VITAMIN D3 [Concomitant]
     Active Substance: CHOLECALCIFEROL
  6. DANAZOL [Concomitant]
     Active Substance: DANAZOL
  7. DULOXETINE [Concomitant]
     Active Substance: DULOXETINE
  8. HYDROCHLOROTHIAZIDE [Concomitant]
     Active Substance: HYDROCHLOROTHIAZIDE
  9. MELOXICAM [Concomitant]
     Active Substance: MELOXICAM
  10. OLMESARTAN [Concomitant]
     Active Substance: OLMESARTAN

REACTIONS (1)
  - Diarrhoea [Recovered/Resolved]

NARRATIVE: CASE EVENT DATE: 20230524
